FAERS Safety Report 9919563 (Version 2)
Quarter: 2014Q1

REPORT INFORMATION
  Report Type: Spontaneous
  Country: NL (occurrence: NL)
  Receive Date: 20140224
  Receipt Date: 20140224
  Transmission Date: 20141002
  Serious: Yes (Hospitalization)
  Sender: FDA-Public Use
  Company Number: PHHY2014NL017761

PATIENT
  Age: 86 Year
  Sex: Female

DRUGS (6)
  1. METFORMIN [Suspect]
     Indication: DIABETES MELLITUS
     Dosage: 500 MG, BID
  2. SOTALOL [Concomitant]
     Dosage: 40 MG, BID
  3. IRBESARTAN [Concomitant]
     Dosage: 150 MG, QD
  4. ACETYLSALICYLIC ACID [Concomitant]
     Dosage: 100 MG, QD
  5. ISOSORBIDE MONONITRATE [Concomitant]
     Dosage: 60 MG, QD
  6. PRAVASTATIN [Concomitant]
     Dosage: 40 MG, QD

REACTIONS (2)
  - Faecal incontinence [Unknown]
  - Diarrhoea [Recovered/Resolved]
